FAERS Safety Report 6699070-X (Version None)
Quarter: 2010Q2

REPORT INFORMATION
  Report Type: 
  Country: None (occurrence: None)
  Receive Date: 20100423
  Receipt Date: 20100407
  Transmission Date: 20101027
  Serious: Yes (Hospitalization)
  Sender: FDA-Public Use
  Company Number: 009335

PATIENT
  Sex: Female

DRUGS (11)
  1. CERTOLIZUMAB PEGOL (CDP870/PLACEBO) [Suspect]
     Indication: RHEUMATOID ARTHRITIS
     Dosage: SUBCUTANEOUS
     Route: 058
     Dates: start: 20091218, end: 20100310
  2. TACROLIMUS [Suspect]
     Indication: RHEUMATOID ARTHRITIS
     Dosage: 2 MG ORAL
     Route: 048
     Dates: start: 20070829
  3. PREDNISOLONE [Suspect]
     Indication: RHEUMATOID ARTHRITIS
     Dosage: 3 MG, 3 MG DAILY ORAL, 5 MG ORAL
     Route: 048
     Dates: start: 20090225
  4. ATORVASTATIN CACLIUM [Concomitant]
  5. OLMESARTAN MEDOXOMIL [Concomitant]
  6. ALENDRONATE SODIUM [Concomitant]
  7. LANSOPRAZOLE [Concomitant]
  8. ALFACALCIDOL [Concomitant]
  9. LOXOPROFEN SODIUM [Concomitant]
  10. ISONIAZID [Concomitant]
  11. CROMOLYN SODIUM [Concomitant]

REACTIONS (6)
  - ARTHRITIS [None]
  - CONDITION AGGRAVATED [None]
  - OROPHARYNGEAL PAIN [None]
  - PNEUMONIA PNEUMOCOCCAL [None]
  - PNEUMONIA PRIMARY ATYPICAL [None]
  - URTICARIA [None]
